FAERS Safety Report 13423173 (Version 2)
Quarter: 2017Q2

REPORT INFORMATION
  Report Type: Spontaneous
  Country: NL (occurrence: NL)
  Receive Date: 20170410
  Receipt Date: 20170622
  Transmission Date: 20170830
  Serious: Yes (Hospitalization, Disabling, Other)
  Sender: FDA-Public Use
  Company Number: NL-AMGEN-NLDSP2017052022

PATIENT
  Age: 73 Year
  Sex: Female
  Weight: 96 kg

DRUGS (4)
  1. WAL PROFEN COLD AND SINUS [Concomitant]
     Active Substance: IBUPROFEN\PSEUDOEPHEDRINE HYDROCHLORIDE
     Dosage: 1.25/400 IE (500 MG CA)
  2. ATORVASTATIN [Concomitant]
     Active Substance: ATORVASTATIN
     Dosage: 10 MG, UNK
     Route: 048
  3. METOPROLOL. [Concomitant]
     Active Substance: METOPROLOL
     Dosage: 12.5 MG, UNK
     Route: 048
  4. PROLIA [Suspect]
     Active Substance: DENOSUMAB
     Indication: OSTEOPOROSIS
     Dosage: 60 MG, Q6MO
     Route: 065
     Dates: start: 201511

REACTIONS (15)
  - Gastrointestinal pain [Unknown]
  - Abdominal pain [Not Recovered/Not Resolved]
  - Proctalgia [Not Recovered/Not Resolved]
  - Urinary tract infection [Unknown]
  - Inflammatory bowel disease [Recovered/Resolved with Sequelae]
  - Gastritis [Recovered/Resolved with Sequelae]
  - Erythema [Unknown]
  - Constipation [Unknown]
  - Wheelchair user [Unknown]
  - Paraesthesia [Unknown]
  - Eye infection [Unknown]
  - Gastrointestinal bacterial infection [Not Recovered/Not Resolved]
  - Vasculitis [Not Recovered/Not Resolved]
  - Arthralgia [Not Recovered/Not Resolved]
  - Pain in extremity [Unknown]

NARRATIVE: CASE EVENT DATE: 201511
